FAERS Safety Report 13960343 (Version 1)
Quarter: 2017Q3

REPORT INFORMATION
  Report Type: Spontaneous
  Country: US (occurrence: US)
  Receive Date: 20170912
  Receipt Date: 20170912
  Transmission Date: 20171128
  Serious: No
  Sender: FDA-Public Use
  Company Number: US-ELI_LILLY_AND_COMPANY-US201709000223

PATIENT
  Sex: Female

DRUGS (3)
  1. HUMULIN R [Suspect]
     Active Substance: INSULIN HUMAN
     Dosage: 55 U, DAILY(55 U, DAILY (50-55 UNITS PER DAY)
     Route: 058
  2. VICTOZA [Concomitant]
     Active Substance: LIRAGLUTIDE
  3. HUMULIN R [Suspect]
     Active Substance: INSULIN HUMAN
     Indication: TYPE 2 DIABETES MELLITUS
     Dosage: 80 U, DAILY
     Route: 058
     Dates: start: 2011

REACTIONS (12)
  - Feeling abnormal [Recovered/Resolved]
  - Blood glucose abnormal [Not Recovered/Not Resolved]
  - Infection [Recovered/Resolved]
  - Dizziness [Recovered/Resolved]
  - Insulin resistant diabetes [Not Recovered/Not Resolved]
  - Memory impairment [Not Recovered/Not Resolved]
  - Blood glucose decreased [Recovered/Resolved]
  - Malaise [Recovered/Resolved]
  - Tooth disorder [Not Recovered/Not Resolved]
  - Hypoacusis [Not Recovered/Not Resolved]
  - Wrong technique in product usage process [Unknown]
  - Blood glucose increased [Recovered/Resolved]
